FAERS Safety Report 5161751-7 (Version None)
Quarter: 2006Q4

REPORT INFORMATION
  Report Type: 
  Country: None (occurrence: None)
  Receive Date: 20061130
  Receipt Date: 20061123
  Transmission Date: 20070319
  Serious: Yes (Other)
  Sender: FDA-Public Use
  Company Number: FR-GLAXOSMITHKLINE-B0447803A

PATIENT
  Sex: Female

DRUGS (2)
  1. TRIZIVIR [Suspect]
     Indication: HIV INFECTION
     Dosage: 1UNIT TWICE PER DAY
     Route: 048
     Dates: start: 20030715
  2. LEVOTHYROXINE SODIUM [Suspect]
     Indication: HYPOTHYROIDISM
     Dosage: 75MCG PER DAY
     Route: 048
     Dates: start: 20051007, end: 20060203

REACTIONS (3)
  - DRUG EXPOSURE DURING PREGNANCY [None]
  - EAR PAIN [None]
  - STILLBIRTH [None]
